FAERS Safety Report 25488188 (Version 1)
Quarter: 2025Q2

REPORT INFORMATION
  Report Type: Report from Study
  Country: GT (occurrence: GT)
  Receive Date: 20250627
  Receipt Date: 20250627
  Transmission Date: 20250716
  Serious: Yes (Hospitalization, Other)
  Sender: AMGEN
  Company Number: GT-SERVIER-S25008627

PATIENT
  Age: 61 Year
  Sex: Female
  Weight: 48 kg

DRUGS (6)
  1. IVABRADINE [Suspect]
     Active Substance: IVABRADINE
     Indication: Heart rate
     Dosage: 10 MG, QD
     Route: 048
     Dates: start: 2021, end: 202502
  2. WARFARIN [Suspect]
     Active Substance: WARFARIN
     Indication: Aortic bypass
     Route: 065
     Dates: start: 2021
  3. WARFARIN [Suspect]
     Active Substance: WARFARIN
     Indication: Coronary artery bypass
  4. ASPIRIN [Suspect]
     Active Substance: ASPIRIN
     Indication: Product used for unknown indication
     Route: 048
     Dates: start: 2021
  5. ROSUVASTATIN [Concomitant]
     Active Substance: ROSUVASTATIN
     Indication: Angiopathy
     Dosage: 20 MG, QD
     Route: 048
  6. EMPAGLIFLOZIN\METFORMIN HYDROCHLORIDE [Concomitant]
     Active Substance: EMPAGLIFLOZIN\METFORMIN HYDROCHLORIDE
     Indication: Diabetes mellitus
     Dosage: 2 DF, QD
     Route: 048

REACTIONS (4)
  - Glaucoma [Unknown]
  - Haemoglobin decreased [Recovering/Resolving]
  - Anaemia [Recovering/Resolving]
  - Gastrointestinal haemorrhage [Recovering/Resolving]

NARRATIVE: CASE EVENT DATE: 20250130
